FAERS Safety Report 9839464 (Version 1)
Quarter: 2014Q1

REPORT INFORMATION
  Report Type: Spontaneous
  Country: GB (occurrence: GB)
  Receive Date: 20140124
  Receipt Date: 20140124
  Transmission Date: 20141002
  Serious: Yes (Other)
  Sender: FDA-Public Use
  Company Number: GB-009507513-1401GBR009686

PATIENT
  Age: 70 Year
  Sex: Male
  Weight: 82.55 kg

DRUGS (4)
  1. LOSARTAN POTASSIUM [Suspect]
     Indication: HYPERTENSION
     Dosage: 25 MG, UNK
     Route: 048
     Dates: start: 20131128, end: 20140105
  2. ASPIRIN [Concomitant]
     Dosage: 75 MG, UNK
  3. ATORVASTATIN [Concomitant]
     Dosage: 40 MG, UNK
  4. BISOPROLOL [Concomitant]
     Dosage: 1.25 MG, UNK

REACTIONS (3)
  - Muscular weakness [Recovered/Resolved]
  - Pain [Recovered/Resolved]
  - Muscle spasms [Recovered/Resolved]
